FAERS Safety Report 6780829-5 (Version None)
Quarter: 2010Q2

REPORT INFORMATION
  Report Type: 
  Country: None (occurrence: None)
  Receive Date: 20100621
  Receipt Date: 20100608
  Transmission Date: 20101027
  Serious: Yes (Other)
  Sender: FDA-Public Use
  Company Number: US-BAYER-201016935NA

PATIENT
  Age: 26 Year
  Sex: Female
  Weight: 77 kg

DRUGS (4)
  1. MIRENA [Suspect]
     Indication: CONTRACEPTION
     Dosage: FREQUENCY CONTINUOUS
     Route: 015
     Dates: start: 20070901, end: 20100313
  2. CLEOCIN [Concomitant]
     Indication: ABSCESS
     Dosage: TOTAL DAILY DOSE: 1200 MG  UNIT DOSE: 300 MG
     Route: 048
     Dates: start: 20100414
  3. IBUPROFEN [Concomitant]
  4. SPRINTEC [Concomitant]

REACTIONS (6)
  - ABDOMINAL ABSCESS [None]
  - ECTOPIC PREGNANCY WITH INTRAUTERINE DEVICE [None]
  - ERYTHEMA [None]
  - PAIN [None]
  - PROCEDURAL PAIN [None]
  - TENDERNESS [None]
